FAERS Safety Report 4939307-8 (Version None)
Quarter: 2006Q1

REPORT INFORMATION
  Report Type: 
  Country: None (occurrence: None)
  Receive Date: 20060310
  Receipt Date: 20060227
  Transmission Date: 20060701
  Serious: Yes (Death)
  Sender: FDA-Public Use
  Company Number: 2006AC00352

PATIENT
  Age: 21 Year
  Sex: Female

DRUGS (5)
  1. LIDOCAINE [Suspect]
  2. AMPHETAMINES [Suspect]
  3. COCAINE [Suspect]
  4. DIAZEPAM [Suspect]
  5. OXAZEPAM [Suspect]

REACTIONS (5)
  - DISSEMINATED INTRAVASCULAR COAGULATION [None]
  - DRUG TOXICITY [None]
  - HYPERTHERMIA [None]
  - LOSS OF CONSCIOUSNESS [None]
  - MULTI-ORGAN FAILURE [None]
